FAERS Safety Report 5740474-7 (Version None)
Quarter: 2008Q2

REPORT INFORMATION
  Report Type: 
  Country: None (occurrence: None)
  Receive Date: 20080516
  Receipt Date: 20080508
  Transmission Date: 20081010
  Serious: Yes (Other)
  Sender: FDA-Public Use
  Company Number: CH-ASTRAZENECA-2008PK00988

PATIENT
  Sex: Female

DRUGS (4)
  1. ARIMIDEX [Suspect]
     Indication: BREAST CANCER FEMALE
     Dates: start: 20080325, end: 20080420
  2. CONDROSULF [Concomitant]
  3. OMEZOL-MEPHA 20 [Concomitant]
  4. OSTEOCAL D3 [Concomitant]

REACTIONS (17)
  - ABDOMINAL DISCOMFORT [None]
  - ABDOMINAL PAIN UPPER [None]
  - ARTHRALGIA [None]
  - CONSTIPATION [None]
  - DRY EYE [None]
  - DRY SKIN [None]
  - FATIGUE [None]
  - FLATULENCE [None]
  - HEADACHE [None]
  - HOT FLUSH [None]
  - MOOD SWINGS [None]
  - MUCOSAL DRYNESS [None]
  - MUSCULOSKELETAL PAIN [None]
  - NAUSEA [None]
  - OSTEOARTHRITIS [None]
  - VULVOVAGINAL DRYNESS [None]
  - WEIGHT INCREASED [None]
